FAERS Safety Report 7544494-1 (Version None)
Quarter: 2011Q2

REPORT INFORMATION
  Report Type: 
  Country: None (occurrence: None)
  Receive Date: 20110613
  Receipt Date: 20110606
  Transmission Date: 20111010
  Serious: Yes (Other)
  Sender: FDA-Public Use
  Company Number: US-RB-021538-11

PATIENT
  Age: 31 Year
  Sex: Male

DRUGS (2)
  1. SUBOXONE [Suspect]
     Indication: PRODUCT USED FOR UNKNOWN INDICATION
     Dosage: SUBOXONE SUBLINGUAL FILM, DOSAGE UNKNOWN.
     Route: 065
  2. SUBOXONE [Suspect]
     Indication: PRODUCT USED FOR UNKNOWN INDICATION
     Dosage: DOSAGE UNKNOWN.
     Route: 065

REACTIONS (12)
  - VOMITING [None]
  - TOOTHACHE [None]
  - HEAT STROKE [None]
  - DRUG ABUSE [None]
  - TOBACCO USER [None]
  - OEDEMA MOUTH [None]
  - DISORIENTATION [None]
  - BLOOD PRESSURE INCREASED [None]
  - PANIC ATTACK [None]
  - HEADACHE [None]
  - DRUG WITHDRAWAL SYNDROME [None]
  - DRUG DEPENDENCE [None]
